FAERS Safety Report 6815160-2 (Version None)
Quarter: 2010Q3

REPORT INFORMATION
  Report Type: 
  Country: None (occurrence: None)
  Receive Date: 20100702
  Receipt Date: 20100622
  Transmission Date: 20110219
  Serious: Yes (Other)
  Sender: FDA-Public Use
  Company Number: DE-GILEAD-2008-0018077

PATIENT
  Sex: Male
  Weight: 83 kg

DRUGS (16)
  1. VIREAD [Suspect]
     Indication: HEPATITIS B
     Route: 048
     Dates: start: 20060401, end: 20060601
  2. VIREAD [Suspect]
     Dates: start: 20071101
  3. HEPSERA [Suspect]
     Indication: HEPATITIS B
     Dates: start: 20050501, end: 20060401
  4. HEPSERA [Suspect]
     Dates: start: 20060601, end: 20070301
  5. HEPSERA [Suspect]
     Dates: start: 20070401, end: 20071101
  6. ENTECAVIR [Concomitant]
     Indication: HEPATITIS B
     Route: 048
  7. ENTECAVIR [Concomitant]
     Route: 048
     Dates: start: 20070301
  8. LAMIVUDINE [Concomitant]
     Dates: start: 20030901, end: 20070301
  9. LORZAN [Concomitant]
     Indication: HYPERTENSION
     Route: 048
  10. OMEP [Concomitant]
     Indication: GASTRITIS
     Route: 048
  11. RAMIPRIL [Concomitant]
     Indication: HYPERTENSION
     Route: 048
  12. BISOPROLOL FUMARATE [Concomitant]
     Indication: HYPERTENSION
     Route: 048
  13. PROPAFENONE HCL [Concomitant]
     Indication: ATRIAL FIBRILLATION
     Route: 048
  14. RENAGEL [Concomitant]
     Indication: RENAL FAILURE
     Route: 048
  15. VITAMIN D3 [Concomitant]
     Indication: RENAL FAILURE
     Route: 048
  16. NEO RECORMON [Concomitant]
     Indication: NEPHROGENIC ANAEMIA
     Route: 058

REACTIONS (5)
  - CREATININE RENAL CLEARANCE DECREASED [None]
  - DIARRHOEA [None]
  - NAUSEA [None]
  - THERAPEUTIC RESPONSE DECREASED [None]
  - VOMITING [None]
